FAERS Safety Report 25012753 (Version 1)
Quarter: 2025Q1

REPORT INFORMATION
  Report Type: Spontaneous
  Country: US (occurrence: None)
  Receive Date: 20250226
  Receipt Date: 20250226
  Transmission Date: 20250409
  Serious: No
  Sender: AXSOME THERAPEUTICS, INC.
  Company Number: US-Axsome Therapeutics, Inc.-AXS202412-002059

PATIENT
  Age: 34 Year
  Sex: Female

DRUGS (3)
  1. AUVELITY [Suspect]
     Active Substance: BUPROPION HYDROCHLORIDE\DEXTROMETHORPHAN HYDROBROMIDE
     Indication: Product used for unknown indication
     Route: 048
     Dates: end: 20241206
  2. CONCERTA [Concomitant]
     Active Substance: METHYLPHENIDATE HYDROCHLORIDE
     Indication: Product used for unknown indication
     Route: 065
  3. LEVOMEFOLATE CALCIUM [Concomitant]
     Active Substance: LEVOMEFOLATE CALCIUM
     Indication: Product used for unknown indication
     Route: 065

REACTIONS (10)
  - Electric shock sensation [Unknown]
  - Anxiety [Unknown]
  - Hyperhidrosis [Unknown]
  - Agitation [Unknown]
  - Fatigue [Unknown]
  - Myalgia [Unknown]
  - Product use issue [Unknown]
  - Therapy interrupted [Unknown]
  - Drug dose titration not performed [Unknown]
  - Inappropriate schedule of product administration [Unknown]
